FAERS Safety Report 7874225-7 (Version None)
Quarter: 2011Q4

REPORT INFORMATION
  Report Type: 
  Country: None (occurrence: None)
  Receive Date: 20111030
  Receipt Date: 20110517
  Transmission Date: 20120403
  Serious: No
  Sender: FDA-Public Use
  Company Number: US-AMGEN-USASP2011019636

PATIENT
  Age: 43 Year
  Sex: Female
  Weight: 68.027 kg

DRUGS (5)
  1. METHOTREXATE [Concomitant]
  2. PEPCID [Concomitant]
  3. ENBREL [Suspect]
     Indication: RHEUMATOID ARTHRITIS
     Dosage: 50 MG, QWK
     Route: 058
     Dates: start: 20110316
  4. PROZAC [Concomitant]
     Dosage: 1 MG, QD
  5. MEDROL [Concomitant]
     Dosage: 1 MG, QD

REACTIONS (7)
  - NAUSEA [None]
  - INJECTION SITE INDURATION [None]
  - INJECTION SITE PRURITUS [None]
  - INJECTION SITE PAIN [None]
  - INJECTION SITE REACTION [None]
  - INJECTION SITE SWELLING [None]
  - INJECTION SITE ERYTHEMA [None]
